FAERS Safety Report 25724865 (Version 2)
Quarter: 2025Q3

REPORT INFORMATION
  Report Type: Report from Study
  Country: CA (occurrence: CA)
  Receive Date: 20250826
  Receipt Date: 20250924
  Transmission Date: 20251020
  Serious: Yes (Other)
  Sender: IPSEN BIOPHARMACEUTICALS, INC.
  Company Number: CA-IPSEN Group, Research and Development-2025-20698

PATIENT
  Age: 65 Year
  Sex: Male

DRUGS (11)
  1. LANREOTIDE ACETATE [Suspect]
     Active Substance: LANREOTIDE ACETATE
     Indication: Gastroenteropancreatic neuroendocrine tumour disease
     Dosage: DEEP SUBCUTANEOUS
     Route: 058
     Dates: start: 20240627
  2. LANREOTIDE ACETATE [Suspect]
     Active Substance: LANREOTIDE ACETATE
     Dosage: DEEP SUBCUTANEOUS
     Route: 058
     Dates: start: 20250918
  3. BISOPROLOL [Concomitant]
     Active Substance: BISOPROLOL
  4. FOLIC ACID [Concomitant]
     Active Substance: FOLIC ACID
  5. HYDROXYZINE [Concomitant]
     Active Substance: HYDROXYZINE HYDROCHLORIDE
  6. LANSOPRAZOLE [Concomitant]
     Active Substance: LANSOPRAZOLE
  7. MAR MIDODRINE [Concomitant]
  8. FUROSEMIDE [Concomitant]
     Active Substance: FUROSEMIDE
  9. PREGABALIN [Concomitant]
     Active Substance: PREGABALIN
  10. SPIRONOLACTONE [Concomitant]
     Active Substance: SPIRONOLACTONE
  11. THC/ CANNABIS [Concomitant]

REACTIONS (1)
  - Infected fistula [Recovered/Resolved]

NARRATIVE: CASE EVENT DATE: 20250728
